FAERS Safety Report 15948745 (Version 1)
Quarter: 2019Q1

REPORT INFORMATION
  Report Type: Spontaneous
  Country: GB (occurrence: GB)
  Receive Date: 20190212
  Receipt Date: 20190212
  Transmission Date: 20190417
  Serious: Yes (Hospitalization, Other)
  Sender: FDA-Public Use
  Company Number: GB-FLAMINGO-002710

PATIENT
  Age: 25 Year
  Sex: Female

DRUGS (6)
  1. FLUCONAZOLE. [Concomitant]
     Active Substance: FLUCONAZOLE
     Indication: PYREXIA
  2. CLINDAMYCIN. [Suspect]
     Active Substance: CLINDAMYCIN
     Indication: PYREXIA
  3. GENTAMICIN. [Suspect]
     Active Substance: GENTAMICIN
     Indication: PYREXIA
  4. METRONIDAZOLE. [Suspect]
     Active Substance: METRONIDAZOLE
     Indication: PYREXIA
  5. TETRACYCLINE [Suspect]
     Active Substance: TETRACYCLINE
     Indication: PYREXIA
  6. VANCOMYCIN [Suspect]
     Active Substance: VANCOMYCIN
     Indication: PYREXIA

REACTIONS (1)
  - Puerperal pyrexia [Recovered/Resolved]
